FAERS Safety Report 11457253 (Version 1)
Quarter: 2015Q3

REPORT INFORMATION
  Report Type: Spontaneous
  Country: US (occurrence: None)
  Receive Date: 20150902
  Receipt Date: 20150902
  Transmission Date: 20151125
  Serious: No
  Sender: FDA-Public Use
  Company Number: SOM-4224-AE

PATIENT
  Age: 59 Year
  Sex: Female

DRUGS (1)
  1. SF 5000 PLUS [Suspect]
     Active Substance: SODIUM FLUORIDE
     Indication: DENTAL FLUORIDE THERAPY
     Dosage: ON TEETH
     Route: 061

REACTIONS (3)
  - Urticaria [None]
  - Incorrect route of drug administration [None]
  - Wrong technique in product usage process [None]

NARRATIVE: CASE EVENT DATE: 20150831
